APPROVED DRUG PRODUCT: ARISTOCORT A
Active Ingredient: TRIAMCINOLONE ACETONIDE
Strength: 0.025%
Dosage Form/Route: CREAM;TOPICAL
Application: A083017 | Product #004
Applicant: ASTELLAS PHARMA US INC
Approved: Approved Prior to Jan 1, 1982 | RLD: No | RS: No | Type: DISCN